FAERS Safety Report 21352103 (Version 1)
Quarter: 2022Q3

REPORT INFORMATION
  Report Type: Spontaneous
  Country: US (occurrence: US)
  Receive Date: 20220920
  Receipt Date: 20220920
  Transmission Date: 20221026
  Serious: No
  Sender: FDA-Public Use
  Company Number: US-TEVA-2022-US-2071436

PATIENT
  Age: 57 Year
  Sex: Male

DRUGS (1)
  1. ELETRIPTAN [Suspect]
     Active Substance: ELETRIPTAN
     Indication: Headache
     Route: 065

REACTIONS (2)
  - Limb injury [Unknown]
  - Product packaging difficult to open [Unknown]
